FAERS Safety Report 24269731 (Version 1)
Quarter: 2024Q3

REPORT INFORMATION
  Report Type: Report from Study
  Country: US (occurrence: US)
  Receive Date: 20240830
  Receipt Date: 20240830
  Transmission Date: 20241016
  Serious: Yes (Other)
  Sender: ABBVIE
  Company Number: US-ABBVIE-5897520

PATIENT
  Sex: Male

DRUGS (1)
  1. HUMIRA [Suspect]
     Active Substance: ADALIMUMAB
     Indication: Rheumatoid arthritis
     Dosage: CITRATE-FREE
     Route: 058
     Dates: start: 20200128

REACTIONS (6)
  - Cerebral small vessel ischaemic disease [Unknown]
  - Sinus disorder [Unknown]
  - Balance disorder [Unknown]
  - Visual impairment [Unknown]
  - Hypersensitivity [Unknown]
  - Headache [Not Recovered/Not Resolved]

NARRATIVE: CASE EVENT DATE: 20240101
